FAERS Safety Report 24537826 (Version 4)
Quarter: 2025Q1

REPORT INFORMATION
  Report Type: Spontaneous
  Country: US (occurrence: US)
  Receive Date: 20241023
  Receipt Date: 20250319
  Transmission Date: 20250409
  Serious: No
  Sender: BIOVITRUM
  Company Number: US-BIOVITRUM-2024-US-012165

PATIENT
  Age: 79 Year
  Sex: Male

DRUGS (15)
  1. VONJO [Suspect]
     Active Substance: PACRITINIB
     Indication: Myelofibrosis
     Route: 048
     Dates: start: 20230906
  2. VONJO [Suspect]
     Active Substance: PACRITINIB
     Route: 048
     Dates: start: 20230906
  3. VONJO [Suspect]
     Active Substance: PACRITINIB
     Route: 048
     Dates: start: 20230906
  4. AMLODIPINE [Concomitant]
     Active Substance: AMLODIPINE BESYLATE
     Indication: Product used for unknown indication
  5. ATORVASTATIN [Concomitant]
     Active Substance: ATORVASTATIN
     Indication: Product used for unknown indication
  6. CALCITRIOL [Concomitant]
     Active Substance: CALCITRIOL
     Indication: Product used for unknown indication
  7. FINASTERIDE [Concomitant]
     Active Substance: FINASTERIDE
     Indication: Product used for unknown indication
  8. LEVOTHYROXINE [Concomitant]
     Active Substance: LEVOTHYROXINE
     Indication: Product used for unknown indication
  9. NITROGLYCERIN [Concomitant]
     Active Substance: NITROGLYCERIN
     Indication: Product used for unknown indication
  10. PANTOPRAZOLE [Concomitant]
     Active Substance: PANTOPRAZOLE
     Indication: Product used for unknown indication
  11. DOCUSATE SODIUM\SENNOSIDES [Concomitant]
     Active Substance: DOCUSATE SODIUM\SENNOSIDES
     Indication: Product used for unknown indication
  12. TAMSULOSIN [Concomitant]
     Active Substance: TAMSULOSIN
     Indication: Product used for unknown indication
  13. CALCIUM/VITAMIN D TABLET [Concomitant]
     Indication: Product used for unknown indication
  14. CEFDINIR [Concomitant]
     Active Substance: CEFDINIR
     Indication: Product used for unknown indication
  15. DOXYCYCLINE [Concomitant]
     Active Substance: DOXYCYCLINE
     Indication: Product used for unknown indication

REACTIONS (10)
  - Product dose omission issue [Unknown]
  - Intentional product misuse [Recovered/Resolved]
  - Nausea [Not Recovered/Not Resolved]
  - Peripheral coldness [Not Recovered/Not Resolved]
  - Splenomegaly [Not Recovered/Not Resolved]
  - Diarrhoea [Unknown]
  - Oxygen saturation decreased [Not Recovered/Not Resolved]
  - Drug effect less than expected [Unknown]
  - Laboratory test abnormal [Not Recovered/Not Resolved]
  - Neuralgia [Unknown]

NARRATIVE: CASE EVENT DATE: 20230906
